FAERS Safety Report 5940899-0 (Version None)
Quarter: 2008Q4

REPORT INFORMATION
  Report Type: 
  Country: None (occurrence: None)
  Receive Date: 20081104
  Receipt Date: 20081021
  Transmission Date: 20090506
  Serious: Yes (Hospitalization)
  Sender: FDA-Public Use
  Company Number: US-ELI_LILLY_AND_COMPANY-US200810004995

PATIENT
  Sex: Female
  Weight: 144.67 kg

DRUGS (5)
  1. BYETTA [Suspect]
     Indication: TYPE 2 DIABETES MELLITUS
     Dosage: 5 UG, 2/D
     Route: 058
     Dates: start: 20080501, end: 20080919
  2. BYETTA [Suspect]
     Dosage: 5 UG, 2/D
     Route: 058
     Dates: start: 20081021
  3. LISINOPRIL [Concomitant]
     Indication: HYPERTENSION
     Dosage: 20 MG, DAILY (1/D)
     Route: 048
  4. ANTIHYPERTENSIVES [Concomitant]
     Indication: HERNIA REPAIR
     Dosage: UNK, UNKNOWN
     Dates: start: 20080901, end: 20080901
  5. INSULIN [Concomitant]
     Indication: HERNIA REPAIR
     Dosage: UNK, UNKNOWN
     Dates: start: 20080901, end: 20080901

REACTIONS (4)
  - ABDOMINAL PAIN [None]
  - DECREASED APPETITE [None]
  - UMBILICAL HERNIA [None]
  - VOMITING [None]
